FAERS Safety Report 14693836 (Version 1)
Quarter: 2018Q1

REPORT INFORMATION
  Report Type: Spontaneous
  Country: US (occurrence: US)
  Receive Date: 20180329
  Receipt Date: 20180329
  Transmission Date: 20180509
  Serious: Yes (Hospitalization, Other)
  Sender: FDA-Public Use
  Company Number: US-GLAXOSMITHKLINE-US2018052275

PATIENT
  Sex: Female

DRUGS (2)
  1. ALBUTEROL SULFATE. [Concomitant]
     Active Substance: ALBUTEROL SULFATE
  2. VENTOLIN HFA [Suspect]
     Active Substance: ALBUTEROL SULFATE
     Indication: ASTHMA
     Dosage: 1 PUFF(S), BID
     Route: 055

REACTIONS (20)
  - Bronchoscopy [Recovering/Resolving]
  - Pneumothorax [Unknown]
  - Gastrooesophageal reflux disease [Unknown]
  - Ill-defined disorder [Unknown]
  - Drug dose omission [Unknown]
  - Aspiration [Recovering/Resolving]
  - Dyspnoea [Unknown]
  - Surgery [Unknown]
  - Wrong technique in product usage process [Unknown]
  - Hyperventilation [Unknown]
  - Cerebrovascular accident [Unknown]
  - Burn oesophageal [Unknown]
  - Paranasal sinus hypersecretion [Not Recovered/Not Resolved]
  - Cough [Unknown]
  - Sinus disorder [Unknown]
  - Wheezing [Unknown]
  - Memory impairment [Unknown]
  - Wrong technique in device usage process [Unknown]
  - Hemiplegia [Unknown]
  - Lung disorder [Unknown]

NARRATIVE: CASE EVENT DATE: 1994
